FAERS Safety Report 25393259 (Version 1)
Quarter: 2025Q2

REPORT INFORMATION
  Report Type: Spontaneous
  Country: CA (occurrence: CA)
  Receive Date: 20250604
  Receipt Date: 20250604
  Transmission Date: 20250717
  Serious: No
  Sender: OCTAPHARMA
  Company Number: CA-OCTA-2025000358

PATIENT
  Age: 69 Year
  Sex: Male

DRUGS (1)
  1. HUMAN IMMUNOGLOBULIN G [Suspect]
     Active Substance: HUMAN IMMUNOGLOBULIN G
     Indication: Aplasia pure red cell
     Route: 042

REACTIONS (1)
  - Infusion related reaction [Unknown]
